FAERS Safety Report 21201266 (Version 1)
Quarter: 2022Q3

REPORT INFORMATION
  Report Type: Spontaneous
  Country: US (occurrence: None)
  Receive Date: 20220811
  Receipt Date: 20220811
  Transmission Date: 20221027
  Serious: No
  Sender: FDA-Public Use
  Company Number: None

PATIENT
  Age: 22 Year
  Sex: Female
  Weight: 72.57 kg

DRUGS (2)
  1. DEVICE\NICOTINE [Suspect]
     Active Substance: DEVICE\NICOTINE
  2. CANNABIS SATIVA SUBSP. INDICA TOP [Suspect]
     Active Substance: CANNABIS SATIVA SUBSP. INDICA TOP

REACTIONS (4)
  - Syncope [None]
  - Urinary incontinence [None]
  - Heavy menstrual bleeding [None]
  - Polymenorrhoea [None]
